FAERS Safety Report 8461362-1 (Version None)
Quarter: 2012Q2

REPORT INFORMATION
  Report Type: 
  Country: None (occurrence: None)
  Receive Date: 20120625
  Receipt Date: 20120614
  Transmission Date: 20120825
  Serious: Yes (Hospitalization, Other)
  Sender: FDA-Public Use
  Company Number: CA-JNJFOC-20120200882

PATIENT
  Sex: Female
  Weight: 62 kg

DRUGS (6)
  1. REMICADE [Suspect]
     Indication: CROHN'S DISEASE
     Route: 042
  2. REMICADE [Suspect]
     Route: 042
     Dates: start: 20120112
  3. REMICADE [Suspect]
     Route: 042
     Dates: start: 20120101
  4. IMURAN [Concomitant]
     Route: 048
  5. ENTOCORT EC [Concomitant]
     Route: 065
  6. ACETAMINOPHEN [Concomitant]
     Route: 065

REACTIONS (2)
  - GASTROINTESTINAL OBSTRUCTION [None]
  - INTESTINAL OBSTRUCTION [None]
